FAERS Safety Report 9759835 (Version 1)
Quarter: 2013Q4

REPORT INFORMATION
  Report Type: Spontaneous
  Country: KW (occurrence: KW)
  Receive Date: 20131216
  Receipt Date: 20131216
  Transmission Date: 20140711
  Serious: Yes (Death, Other)
  Sender: FDA-Public Use
  Company Number: KW-BEH-2013039544

PATIENT
  Age: 31 Year
  Sex: Male

DRUGS (1)
  1. IVIG [Suspect]
     Indication: GUILLAIN-BARRE SYNDROME
     Route: 042

REACTIONS (7)
  - Cardiac arrest [Fatal]
  - Sepsis [Fatal]
  - Pneumonia aspiration [Unknown]
  - Cardiovascular disorder [Unknown]
  - Renal impairment [Unknown]
  - Pyrexia [Unknown]
  - Drug ineffective [Unknown]
